FAERS Safety Report 19375405 (Version 1)
Quarter: 2021Q2

REPORT INFORMATION
  Report Type: Report from Study
  Country: FR (occurrence: FR)
  Receive Date: 20210604
  Receipt Date: 20210604
  Transmission Date: 20210717
  Serious: Yes (Other)
  Sender: FDA-Public Use
  Company Number: FR-BRISTOL-MYERS SQUIBB COMPANY-BMS-2021-053169

PATIENT
  Age: 77 Year
  Sex: Female

DRUGS (1)
  1. NIVOLUMAB [Suspect]
     Active Substance: NIVOLUMAB
     Indication: MALIGNANT MELANOMA
     Dosage: 45 MILLIGRAM/KILOGRAM
     Route: 065

REACTIONS (6)
  - Acute kidney injury [Unknown]
  - Immune-mediated hepatic disorder [Unknown]
  - Off label use [Unknown]
  - Immune-mediated thyroiditis [Unknown]
  - Immune-mediated enterocolitis [Unknown]
  - Skin disorder [Unknown]
